FAERS Safety Report 23345948 (Version 1)
Quarter: 2023Q4

REPORT INFORMATION
  Report Type: Spontaneous
  Country: US (occurrence: None)
  Receive Date: 20231227
  Receipt Date: 20231227
  Transmission Date: 20240109
  Serious: Yes (Disabling)
  Sender: FDA-Public Use
  Company Number: None

PATIENT
  Age: 17 Year
  Sex: Male
  Weight: 51.75 kg

DRUGS (1)
  1. XCOPRI [Suspect]
     Active Substance: CENOBAMATE

REACTIONS (4)
  - Muscular weakness [None]
  - Musculoskeletal stiffness [None]
  - Strabismus [None]
  - Movement disorder [None]

NARRATIVE: CASE EVENT DATE: 20231220
